FAERS Safety Report 5960012-3 (Version None)
Quarter: 2008Q4

REPORT INFORMATION
  Report Type: 
  Country: None (occurrence: None)
  Receive Date: 20081120
  Receipt Date: 20081117
  Transmission Date: 20090506
  Serious: Yes (Hospitalization, Other)
  Sender: FDA-Public Use
  Company Number: US-MERCK-0811USA01827

PATIENT
  Age: 44 Year
  Sex: Male
  Weight: 85 kg

DRUGS (12)
  1. ISENTRESS [Suspect]
     Indication: HIV INFECTION
     Route: 048
     Dates: start: 20070920, end: 20081006
  2. NORVIR [Concomitant]
     Indication: HIV INFECTION
     Route: 048
     Dates: start: 20070920, end: 20081006
  3. DENAVIR [Concomitant]
     Route: 065
  4. TRUVADA [Concomitant]
     Indication: HIV INFECTION
     Route: 048
     Dates: start: 20070920, end: 20081006
  5. ALLEGRA [Concomitant]
     Route: 065
  6. ALEVE [Concomitant]
     Route: 065
  7. FLONASE [Concomitant]
     Route: 065
  8. SUDAFED 12 HOUR [Concomitant]
     Route: 065
  9. IBUPROFEN [Concomitant]
     Route: 065
  10. DARUNAVIR [Concomitant]
     Indication: HIV INFECTION
     Route: 048
     Dates: start: 20070920, end: 20080923
  11. DARUNAVIR [Concomitant]
     Route: 048
     Dates: start: 20080923, end: 20081006
  12. PATANASE [Concomitant]
     Route: 065
     Dates: start: 20080901

REACTIONS (3)
  - HEADACHE [None]
  - PYREXIA [None]
  - RASH [None]
